FAERS Safety Report 7206871-8 (Version None)
Quarter: 2010Q4

REPORT INFORMATION
  Report Type: 
  Country: None (occurrence: None)
  Receive Date: 20101230
  Receipt Date: 20101230
  Transmission Date: 20110411
  Serious: Yes (Hospitalization)
  Sender: FDA-Public Use
  Company Number: None

PATIENT
  Age: 41 Year
  Sex: Female
  Weight: 86.1834 kg

DRUGS (1)
  1. DARVOCET [Suspect]
     Indication: PAIN MANAGEMENT
     Dosage: Q-8 HOURS WHEN NEEDED BY MOUTH PO
     Route: 048
     Dates: start: 20100301, end: 20101101

REACTIONS (4)
  - CHEST PAIN [None]
  - DIZZINESS [None]
  - LOSS OF CONSCIOUSNESS [None]
  - PALPITATIONS [None]
